FAERS Safety Report 8620284 (Version 2)
Quarter: 2012Q4

REPORT INFORMATION
  Report Type: 
  Country: US (occurrence: US)
  Receive Date: 20120618
  Receipt Date: 20121011
  Transmission Date: 20130627
  Serious: Yes (Other)
  Sender: FDA-Public Use
  Company Number: US-ASTRAZENECA-2011SE36702

PATIENT
  Age: 832 Month
  Sex: Female

DRUGS (8)
  1. NEXIUM [Suspect]
     Route: 048
  2. APIDRA [Concomitant]
     Dosage: 100 unit/ml, 6 x 3 ml/pen 3 times every day up to 75 unit
  3. LANTUS [Concomitant]
     Dosage: 100 UNITS/ML, 7X3ML/PEN, TWO TIMES DAILY UP TO 100 UNITS PER DAY
  4. AMITRIPTY [Concomitant]
  5. BABY ASPIRIN [Concomitant]
  6. ADVIL [Concomitant]
  7. ALEVE [Concomitant]
  8. MOTRIN [Concomitant]

REACTIONS (8)
  - Cerebrovascular accident [Unknown]
  - Fibromyalgia [Unknown]
  - Arthritis [Unknown]
  - Hypertension [Unknown]
  - Asthma [Unknown]
  - Insulin-requiring type 2 diabetes mellitus [Unknown]
  - Pain [Unknown]
  - Drug dose omission [Unknown]
